FAERS Safety Report 5037840-4 (Version None)
Quarter: 2006Q2

REPORT INFORMATION
  Report Type: 
  Country: None (occurrence: None)
  Receive Date: 20060601
  Receipt Date: 20060209
  Transmission Date: 20061013
  Serious: No
  Sender: FDA-Public Use
  Company Number: 2006PV008466

PATIENT
  Age: 53 Year
  Sex: Female
  Weight: 134.2647 kg

DRUGS (5)
  1. BYETTA [Suspect]
     Indication: DIABETES MELLITUS NON-INSULIN-DEPENDENT
     Dosage: 10 MCG;BID;SC
     Route: 058
     Dates: start: 20060209
  2. HUMULIN 70/30 [Concomitant]
  3. ACTOS /USA/ [Concomitant]
  4. LASIX [Concomitant]
  5. HUMULIN 70/30 [Concomitant]

REACTIONS (9)
  - BLOOD GLUCOSE DECREASED [None]
  - DECREASED APPETITE [None]
  - DYSPEPSIA [None]
  - FATIGUE [None]
  - FEELING ABNORMAL [None]
  - FEELING JITTERY [None]
  - NAUSEA [None]
  - NERVOUSNESS [None]
  - STOMACH DISCOMFORT [None]
